FAERS Safety Report 13178247 (Version 1)
Quarter: 2017Q1

REPORT INFORMATION
  Report Type: Spontaneous
  Country: US (occurrence: US)
  Receive Date: 20170131
  Receipt Date: 20170131
  Transmission Date: 20170428
  Serious: No
  Sender: FDA-Public Use
  Company Number: None

PATIENT
  Age: 70 Year
  Sex: Female
  Weight: 71.1 kg

DRUGS (10)
  1. SIMVASTATIN. [Concomitant]
     Active Substance: SIMVASTATIN
  2. FLUTICASONE. [Concomitant]
     Active Substance: FLUTICASONE
  3. PANTOPROZOLE [Concomitant]
  4. ONE-A-DAY VITAMIN [Concomitant]
  5. BUPROPION. [Concomitant]
     Active Substance: BUPROPION
  6. ACYCLOVIR. [Concomitant]
     Active Substance: ACYCLOVIR
  7. MONTELUKAST [Concomitant]
     Active Substance: MONTELUKAST SODIUM
  8. DULOXETINE HCL 30 MG CAP LUPI [Suspect]
     Active Substance: DULOXETINE HYDROCHLORIDE
     Indication: DEPRESSION
     Dosage: ?          QUANTITY:30 CAPSULE(S);?
     Route: 048
     Dates: start: 20170105, end: 20170118
  9. CALCIUM [Concomitant]
     Active Substance: CALCIUM
  10. VITAMIN B12 [Concomitant]
     Active Substance: CYANOCOBALAMIN

REACTIONS (5)
  - Decreased interest [None]
  - Somnolence [None]
  - Asthenia [None]
  - Balance disorder [None]
  - Depressed mood [None]

NARRATIVE: CASE EVENT DATE: 20170105
